FAERS Safety Report 16945088 (Version 1)
Quarter: 2019Q4

REPORT INFORMATION
  Report Type: Spontaneous
  Country: CA (occurrence: CA)
  Receive Date: 20191022
  Receipt Date: 20191022
  Transmission Date: 20200122
  Serious: Yes (Hospitalization, Other)
  Sender: FDA-Public Use
  Company Number: CA-APOTEX-2019AP023746

PATIENT
  Sex: Female

DRUGS (11)
  1. PANTOPRAZOLE [Concomitant]
     Active Substance: PANTOPRAZOLE
     Indication: PRODUCT USED FOR UNKNOWN INDICATION
     Dosage: UNK
     Route: 065
  2. BENZTROPINE. [Suspect]
     Active Substance: BENZTROPINE
     Indication: MUSCLE RIGIDITY
     Dosage: 2 MG, PRN
     Route: 065
  3. CLONAZEPAM. [Suspect]
     Active Substance: CLONAZEPAM
     Indication: PRODUCT USED FOR UNKNOWN INDICATION
     Dosage: UNK
     Route: 065
  4. BUPRENORPHINE HCL AND NALOXONE HCL [Suspect]
     Active Substance: BUPRENORPHINE HYDROCHLORIDE\NALOXONE HYDROCHLORIDE
     Indication: PAIN
     Dosage: UNK
     Route: 065
  5. LORAZEPAM. [Concomitant]
     Active Substance: LORAZEPAM
     Indication: AGITATION
     Dosage: 3 MG, QD
     Route: 065
  6. LORAZEPAM. [Concomitant]
     Active Substance: LORAZEPAM
     Indication: INSOMNIA
  7. LURASIDONE [Suspect]
     Active Substance: LURASIDONE
     Indication: AFFECTIVE DISORDER
     Dosage: UNK
     Route: 065
  8. LORAZEPAM. [Concomitant]
     Active Substance: LORAZEPAM
     Indication: ANXIETY
     Dosage: 1 MG, PRN
     Route: 065
  9. DIMENHYDRINATE. [Suspect]
     Active Substance: DIMENHYDRINATE
     Indication: NAUSEA
     Dosage: 2400 MG, DAILY
     Route: 065
  10. BENZTROPINE. [Suspect]
     Active Substance: BENZTROPINE
     Indication: MUSCULOSKELETAL STIFFNESS
     Dosage: 8 MG, PER DAY (SCHEDULED DOSING)
     Route: 065
  11. BENZTROPINE. [Suspect]
     Active Substance: BENZTROPINE
     Indication: NAUSEA

REACTIONS (23)
  - Chills [Recovering/Resolving]
  - Musculoskeletal stiffness [Recovering/Resolving]
  - Sedation [Recovering/Resolving]
  - Euphoric mood [Recovering/Resolving]
  - Intentional product misuse [Recovering/Resolving]
  - Anxiety [Recovering/Resolving]
  - Toxicity to various agents [Recovering/Resolving]
  - Therapeutic response unexpected [Unknown]
  - Withdrawal syndrome [Recovering/Resolving]
  - Psychomotor retardation [Recovering/Resolving]
  - Somnolence [Recovering/Resolving]
  - Nausea [Recovering/Resolving]
  - Lethargy [Recovering/Resolving]
  - Apathy [Recovering/Resolving]
  - Incorrect route of product administration [Unknown]
  - Vomiting [Recovering/Resolving]
  - Dizziness [Recovering/Resolving]
  - Headache [Recovering/Resolving]
  - Muscle spasms [Recovering/Resolving]
  - Drug use disorder [Recovering/Resolving]
  - Extra dose administered [Unknown]
  - Urinary retention [Recovered/Resolved]
  - Hyperhidrosis [Recovering/Resolving]
